FAERS Safety Report 15051411 (Version 1)
Quarter: 2018Q2

REPORT INFORMATION
  Report Type: Spontaneous
  Country: US (occurrence: US)
  Receive Date: 20180622
  Receipt Date: 20180622
  Transmission Date: 20180711
  Serious: Yes (Hospitalization)
  Sender: FDA-Public Use
  Company Number: US-ELI_LILLY_AND_COMPANY-US201806004952

PATIENT
  Age: 58 Year
  Sex: Male

DRUGS (12)
  1. GEMZAR [Suspect]
     Active Substance: GEMCITABINE HYDROCHLORIDE
     Dosage: 1392 MG, CYCLICAL
     Route: 065
     Dates: start: 20180313
  2. GEMZAR [Suspect]
     Active Substance: GEMCITABINE HYDROCHLORIDE
     Dosage: 580 MG, CYCLICAL
     Route: 065
     Dates: start: 20180403
  3. GEMZAR [Suspect]
     Active Substance: GEMCITABINE HYDROCHLORIDE
     Dosage: 1702 MG, CYCLICAL
     Route: 065
     Dates: start: 20180213
  4. GEMZAR [Suspect]
     Active Substance: GEMCITABINE HYDROCHLORIDE
     Dosage: 572 MG, CYCLICAL
     Route: 065
     Dates: start: 20180417, end: 20180417
  5. GEMZAR [Suspect]
     Active Substance: GEMCITABINE HYDROCHLORIDE
     Dosage: 1069.5 MG, CYCLICAL
     Route: 065
     Dates: start: 20180116
  6. ZOFRAN [Suspect]
     Active Substance: ONDANSETRON HYDROCHLORIDE
     Indication: NAUSEA
     Dosage: UNK, UNKNOWN
     Route: 065
  7. GEMZAR [Suspect]
     Active Substance: GEMCITABINE HYDROCHLORIDE
     Indication: PANCREATIC CARCINOMA
     Dosage: 1702 MG, CYCLICAL
     Route: 065
     Dates: start: 20180109
  8. GEMZAR [Suspect]
     Active Substance: GEMCITABINE HYDROCHLORIDE
     Dosage: 1717 MG, CYCLICAL
     Route: 065
     Dates: start: 20180206
  9. GEMZAR [Suspect]
     Active Substance: GEMCITABINE HYDROCHLORIDE
     Dosage: 572 MG, CYCLICAL
     Route: 065
     Dates: start: 20180410
  10. GEMZAR [Suspect]
     Active Substance: GEMCITABINE HYDROCHLORIDE
     Dosage: 1702 MG, CYCLICAL
     Route: 065
     Dates: start: 20180123
  11. GEMZAR [Suspect]
     Active Substance: GEMCITABINE HYDROCHLORIDE
     Dosage: 1386 MG, CYCLICAL
     Route: 065
     Dates: start: 20180220
  12. GEMZAR [Suspect]
     Active Substance: GEMCITABINE HYDROCHLORIDE
     Dosage: 1392 MG, CYCLICAL
     Route: 065
     Dates: start: 20180306

REACTIONS (4)
  - Thrombotic microangiopathy [Not Recovered/Not Resolved]
  - Nausea [Not Recovered/Not Resolved]
  - Sinusitis [Recovered/Resolved]
  - Headache [Not Recovered/Not Resolved]

NARRATIVE: CASE EVENT DATE: 20180503
